FAERS Safety Report 5178988-3 (Version None)
Quarter: 2006Q4

REPORT INFORMATION
  Report Type: 
  Country: None (occurrence: None)
  Receive Date: 20061215
  Receipt Date: 20061215
  Transmission Date: 20070319
  Serious: Yes (Hospitalization)
  Sender: FDA-Public Use
  Company Number: None

PATIENT
  Sex: Female
  Weight: 8.4 kg

DRUGS (2)
  1. PROPOFOL [Suspect]
     Indication: GENERAL ANAESTHESIA
     Dosage: 10MG  ONE TIME BOLUS   IV BOLUS
     Route: 040
     Dates: start: 20061101, end: 20061101
  2. PROPOFOL [Suspect]
     Dosage: 32.8 MG    ONE TIME INFUSION   IV DRIP

REACTIONS (6)
  - DELIRIUM [None]
  - DEPRESSED MOOD [None]
  - IRRITABILITY [None]
  - PYREXIA [None]
  - RESPIRATORY SYNCYTIAL VIRUS INFECTION [None]
  - RHINOVIRUS INFECTION [None]
